FAERS Safety Report 10625072 (Version 1)
Quarter: 2014Q4

REPORT INFORMATION
  Report Type: Spontaneous
  Country: NL (occurrence: None)
  Receive Date: 20141124
  Receipt Date: 20141124
  Transmission Date: 20150529
  Serious: Yes (Other)
  Sender: FDA-Public Use
  Company Number: GAM-404-14-NL

PATIENT
  Sex: Female

DRUGS (4)
  1. PREDNISOLONE. [Concomitant]
     Active Substance: PREDNISOLONE
  2. OCTAGAM IMMUNE GLOBULIN (HUMAN) [Suspect]
     Active Substance: HUMAN IMMUNOGLOBULIN G
     Indication: MYASTHENIA GRAVIS
     Route: 042
     Dates: start: 20141020, end: 20141026
  3. AZATHIOPRINE. [Concomitant]
     Active Substance: AZATHIOPRINE
  4. CYCLOSPORINE. [Concomitant]
     Active Substance: CYCLOSPORINE

REACTIONS (4)
  - Suspected transmission of an infectious agent via product [None]
  - Hepatitis B surface antibody positive [None]
  - Hepatitis B core antibody positive [None]
  - Exposure during pregnancy [None]

NARRATIVE: CASE EVENT DATE: 20141029
